FAERS Safety Report 22089560 (Version 9)
Quarter: 2025Q4

REPORT INFORMATION
  Report Type: Spontaneous
  Country: JP (occurrence: JP)
  Receive Date: 20230313
  Receipt Date: 20251117
  Transmission Date: 20260117
  Serious: Yes (Death, Life-Threatening, Other)
  Sender: JOHNSON AND JOHNSON
  Company Number: JP-JNJFOC-20230327977

PATIENT
  Age: 43 Year
  Sex: Female
  Weight: 38.7 kg

DRUGS (19)
  1. UPTRAVI [Suspect]
     Active Substance: SELEXIPAG
     Indication: Pulmonary capillary haemangiomatosis
     Dosage: AFTER BREAKFAST AND DINNER
     Route: 048
     Dates: start: 20220924, end: 20230302
  2. UPTRAVI [Suspect]
     Active Substance: SELEXIPAG
     Indication: Pulmonary arterial hypertension
  3. OPSUMIT [Suspect]
     Active Substance: MACITENTAN
     Indication: Pulmonary capillary haemangiomatosis
     Route: 048
     Dates: start: 20220912, end: 20230302
  4. OPSUMIT [Suspect]
     Active Substance: MACITENTAN
     Indication: Pulmonary arterial hypertension
  5. TRACLEER [Suspect]
     Active Substance: BOSENTAN
     Indication: Pulmonary capillary haemangiomatosis
     Route: 048
     Dates: start: 20220812, end: 20220827
  6. EPOPROSTENOL [Suspect]
     Active Substance: EPOPROSTENOL
     Indication: Pulmonary capillary haemangiomatosis
     Route: 041
     Dates: start: 20220805, end: 20220827
  7. EPOPROSTENOL [Suspect]
     Active Substance: EPOPROSTENOL
     Dosage: 1-6NG/KG/MIN
     Route: 041
     Dates: start: 20220828, end: 20221015
  8. REVATIO [Concomitant]
     Active Substance: SILDENAFIL CITRATE
     Indication: Pulmonary capillary haemangiomatosis
     Route: 048
     Dates: start: 20221020, end: 20230302
  9. REVATIO [Concomitant]
     Active Substance: SILDENAFIL CITRATE
     Indication: Pulmonary arterial hypertension
     Dosage: AFTER EACH MEAL
     Route: 048
     Dates: start: 20221019, end: 20230302
  10. PIMOBENDAN [Concomitant]
     Active Substance: PIMOBENDAN
     Indication: Pulmonary capillary haemangiomatosis
     Route: 048
     Dates: start: 20220914, end: 20220923
  11. DIGOXIN [Concomitant]
     Active Substance: DIGOXIN
     Indication: Pulmonary capillary haemangiomatosis
     Route: 048
     Dates: start: 20220526, end: 20220911
  12. DOCARPAMINE [Concomitant]
     Active Substance: DOCARPAMINE
     Indication: Pulmonary capillary haemangiomatosis
     Route: 048
     Dates: start: 20221020, end: 20221116
  13. DOCARPAMINE [Concomitant]
     Active Substance: DOCARPAMINE
     Indication: Pulmonary arterial hypertension
     Dosage: AFTER EACH MEAL
     Route: 048
     Dates: start: 20221116, end: 20230302
  14. UNSPECIFIED INGREDIENT [Concomitant]
     Active Substance: UNSPECIFIED INGREDIENT
     Indication: Pulmonary capillary haemangiomatosis
     Dosage: DOSE UNKNOWN
     Route: 065
     Dates: start: 20220729
  15. HUMAN RED BLOOD CELL [Concomitant]
     Active Substance: HUMAN RED BLOOD CELL
     Indication: Product used for unknown indication
     Route: 065
     Dates: start: 20220801, end: 20220826
  16. FRESH FROZEN PLASMA [Concomitant]
     Active Substance: HUMAN PLASMA
     Indication: Product used for unknown indication
     Route: 065
     Dates: start: 20220801, end: 20220826
  17. PLATELETS [Concomitant]
     Active Substance: HUMAN PLATELET, ALLOGENIC
     Indication: Product used for unknown indication
     Route: 065
     Dates: start: 20220801, end: 20220826
  18. BERAPROST SODIUM [Concomitant]
     Active Substance: BERAPROST SODIUM
     Indication: Pulmonary capillary haemangiomatosis
     Dosage: AFTER EACH MEAL
     Route: 048
     Dates: start: 20220801, end: 20220806
  19. UNSPECIFIED INGREDIENT [Concomitant]
     Active Substance: UNSPECIFIED INGREDIENT
     Indication: Product used for unknown indication
     Dates: start: 20220729

REACTIONS (7)
  - Acute respiratory distress syndrome [Fatal]
  - Sepsis [Fatal]
  - Cryptococcosis [Fatal]
  - Respiratory failure [Fatal]
  - Dyspnoea [Unknown]
  - Pulmonary arterial hypertension [Unknown]
  - Pulmonary oedema [Unknown]

NARRATIVE: CASE EVENT DATE: 20220812
